FAERS Safety Report 5856320-7 (Version None)
Quarter: 2008Q3

REPORT INFORMATION
  Report Type: 
  Country: None (occurrence: None)
  Receive Date: 20080825
  Receipt Date: 20080815
  Transmission Date: 20090109
  Serious: Yes (Death)
  Sender: FDA-Public Use
  Company Number: AU-AMGEN-US282624

PATIENT
  Sex: Male

DRUGS (4)
  1. ENBREL [Suspect]
     Indication: PSORIATIC ARTHROPATHY
     Dosage: ^50MG WEEKLY^
     Route: 058
     Dates: start: 20070306
  2. ENBREL [Suspect]
     Indication: PSORIASIS
  3. COLCHICINE [Concomitant]
     Dosage: UNKNOWN
  4. METHOTREXATE [Concomitant]
     Dosage: ^10MG WEEKLY^
     Route: 048

REACTIONS (1)
  - GASTROINTESTINAL CARCINOMA [None]
